FAERS Safety Report 4323016-2 (Version None)
Quarter: 2004Q1

REPORT INFORMATION
  Report Type: 
  Country: None (occurrence: None)
  Receive Date: 20040322
  Receipt Date: 20040309
  Transmission Date: 20041129
  Serious: Yes (Other)
  Sender: FDA-Public Use
  Company Number: 2003144476US

PATIENT
  Age: 41 Year
  Sex: Female

DRUGS (1)
  1. ROGAINE [Suspect]
     Indication: FEMALE PATTERN BALDNESS
     Dosage: 1 ML, BID, TOPICAL
     Route: 061
     Dates: start: 20010101

REACTIONS (3)
  - HAIR COLOUR CHANGES [None]
  - MULTIPLE SCLEROSIS [None]
  - SKIN IRRITATION [None]
